FAERS Safety Report 13002225 (Version 1)
Quarter: 2016Q4

REPORT INFORMATION
  Report Type: Spontaneous
  Country: US (occurrence: US)
  Receive Date: 20161206
  Receipt Date: 20161206
  Transmission Date: 20170207
  Serious: No
  Sender: FDA-Public Use
  Company Number: US-GLAXOSMITHKLINE-US2016179229

PATIENT
  Sex: Male

DRUGS (1)
  1. NICORETTE WHITE ICE MINT [Suspect]
     Active Substance: NICOTINE
     Indication: TOBACCO WITHDRAWAL SYMPTOMS
     Dosage: 4 MG, UNK

REACTIONS (1)
  - Product use issue [Unknown]
